FAERS Safety Report 9819535 (Version 2)
Quarter: 2014Q1

REPORT INFORMATION
  Report Type: Spontaneous
  Country: US (occurrence: None)
  Receive Date: 20140113
  Receipt Date: 20140326
  Transmission Date: 20141002
  Serious: Yes (Hospitalization, Other)
  Sender: FDA-Public Use
  Company Number: SYM-2014-14715

PATIENT
  Age: 75 Year
  Sex: Male
  Weight: 65.77 kg

DRUGS (19)
  1. XENAZINE [Suspect]
     Indication: HUNTINGTON^S DISEASE
     Dosage: 25MG, 2 IN 1 D, ORAL
     Route: 048
     Dates: end: 201308
  2. SIMVASTATIN (SIMVASTATIN) (SIMVASTATIN) [Concomitant]
  3. FENOFIBRATE (FENOFIBRATE) (FENOFIBRATE) [Concomitant]
  4. FELODIPINE (FELODIPINE) (FELODIPINE) [Concomitant]
  5. DONEPEZIL (DONEPEZIL) (DONEPEZIL) [Concomitant]
  6. BACTRIM (BACTRIM) (SULFAMETHOXAZOLE, TRIMETHOPRIM) [Concomitant]
  7. MIRTAZAPINE [Suspect]
     Indication: PRODUCT USED FOR UNKNOWN INDICATION
     Route: 048
     Dates: start: 201306, end: 201308
  8. OMEPRAZOLE (OMEPRAZOLE) [Concomitant]
  9. ROPINIROLE (ROPINIROLE) [Concomitant]
  10. DYAZIDE (HYDROCHLOROTHIAZIDE, TIRAMTERENE [Concomitant]
  11. COQ10 (UBIDECARENONE) (800 MILLIGRAM) (UBIDECARENONE) [Concomitant]
  12. CREATINE  MONOHYDRATE (2000 MILLIGRAM) (UBIDECARENON) [Concomitant]
  13. VITAMIN E (TOCOPHEROL) (2000 IU (INTERNATIONAL UNIT ) (TOCOPHEROL) [Concomitant]
  14. ACETYLCARNITINE (600 MILLIGRAM) (ACETYLCARNITINE) [Concomitant]
  15. POTASSIUM GLUCONATE (POTASSIUM GLUCONATE) [Concomitant]
  16. PROBIOTICS (NULL) [Concomitant]
  17. ARICEPT (DONEPEZIL HYDROCHLORIDE) [Concomitant]
  18. VALIUM [Suspect]
     Indication: SEDATION
     Route: 048
     Dates: start: 201206, end: 201206
  19. BLOOD PRESSURE MEDICATIONS (ANTIHYPERTENSIVES) [Concomitant]

REACTIONS (13)
  - Diarrhoea haemorrhagic [None]
  - Dehydration [None]
  - Weight decreased [None]
  - Somnolence [None]
  - Dementia [None]
  - Fall [None]
  - Cerebrovascular accident [None]
  - Neoplasm malignant [None]
  - Aggression [None]
  - Aggression [None]
  - Brain neoplasm [None]
  - Metastases to spine [None]
  - Metastases to lymph nodes [None]
